FAERS Safety Report 5843622-3 (Version None)
Quarter: 2008Q3

REPORT INFORMATION
  Report Type: 
  Country: None (occurrence: None)
  Receive Date: 20080813
  Receipt Date: 20080708
  Transmission Date: 20090109
  Serious: No
  Sender: FDA-Public Use
  Company Number: A0736461A

PATIENT
  Age: 69 Year
  Sex: Male

DRUGS (11)
  1. COREG CR [Suspect]
     Indication: HYPERTENSION
     Dosage: 40MG PER DAY
     Route: 048
     Dates: start: 20080629
  2. AVAPRO [Concomitant]
  3. GLIPIZIDE [Concomitant]
  4. ISOSORBIDE MONONITRATE [Concomitant]
  5. JANUVIA [Concomitant]
  6. METFORMIN HCL [Concomitant]
  7. M.V.I. [Concomitant]
  8. AMLODIPINE [Concomitant]
  9. PLAVIX [Concomitant]
  10. RANEXA [Concomitant]
  11. ZOCOR [Concomitant]

REACTIONS (3)
  - HYPERTENSION [None]
  - HYPOAESTHESIA [None]
  - OEDEMA PERIPHERAL [None]
